FAERS Safety Report 5992216-8 (Version None)
Quarter: 2008Q4

REPORT INFORMATION
  Report Type: 
  Country: None (occurrence: None)
  Receive Date: 20081211
  Receipt Date: 20080513
  Transmission Date: 20090506
  Serious: No
  Sender: FDA-Public Use
  Company Number: US-AMGEN-KDL277612

PATIENT
  Sex: Female
  Weight: 65.8 kg

DRUGS (8)
  1. ENBREL [Suspect]
     Indication: PSORIASIS
     Route: 058
     Dates: start: 20080320
  2. DOVONEX [Concomitant]
  3. ALBUTEROL [Concomitant]
     Dates: start: 20031104
  4. SINGULAIR [Concomitant]
     Dates: start: 20080110
  5. SYMBICORT [Concomitant]
     Dates: start: 20080320
  6. ZYRTEC [Concomitant]
  7. RELAFEN [Concomitant]
  8. CLOBETASOL PROPIONATE [Concomitant]

REACTIONS (4)
  - HEADACHE [None]
  - HYPERTENSION [None]
  - JOINT SWELLING [None]
  - VISION BLURRED [None]
